FAERS Safety Report 18147664 (Version 8)
Quarter: 2024Q4

REPORT INFORMATION
  Report Type: Report from Study
  Country: US (occurrence: US)
  Receive Date: 20200813
  Receipt Date: 20241203
  Transmission Date: 20250114
  Serious: Yes (Other)
  Sender: TAKEDA
  Company Number: US-SHIRE-US202025886

PATIENT
  Age: 13 Year
  Sex: Male

DRUGS (4)
  1. ADVATE [Suspect]
     Active Substance: ANTIHEMOPHILIC FACTOR, HUMAN RECOMBINANT
     Indication: Product used for unknown indication
     Dosage: 3750 INTERNATIONAL UNIT
  2. ADVATE [Suspect]
     Active Substance: ANTIHEMOPHILIC FACTOR, HUMAN RECOMBINANT
     Dosage: 4500 INTERNATIONAL UNIT
  3. ADVATE [Suspect]
     Active Substance: ANTIHEMOPHILIC FACTOR, HUMAN RECOMBINANT
     Dosage: 4500 INTERNATIONAL UNIT
  4. ADVATE [Suspect]
     Active Substance: ANTIHEMOPHILIC FACTOR, HUMAN RECOMBINANT
     Dosage: 3800 INTERNATIONAL UNIT

REACTIONS (8)
  - Haemarthrosis [Not Recovered/Not Resolved]
  - Genital haemorrhage [Unknown]
  - Haemorrhage [Not Recovered/Not Resolved]
  - Mouth haemorrhage [Recovered/Resolved]
  - Joint swelling [Not Recovered/Not Resolved]
  - Extra dose administered [Unknown]
  - Mouth injury [Unknown]
  - Limb injury [Unknown]

NARRATIVE: CASE EVENT DATE: 20200625
